FAERS Safety Report 6603393-X (Version None)
Quarter: 2010Q1

REPORT INFORMATION
  Report Type: 
  Country: None (occurrence: None)
  Receive Date: 20100226
  Receipt Date: 20090928
  Transmission Date: 20100710
  Serious: No
  Sender: FDA-Public Use
  Company Number: A0776409A

PATIENT
  Age: 29 Year
  Sex: Female
  Weight: 109.1 kg

DRUGS (4)
  1. VALTREX [Suspect]
     Indication: GENITAL HERPES
     Dosage: 500MG PER DAY
     Route: 048
     Dates: start: 20080501
  2. WELLBUTRIN XL [Suspect]
     Indication: DISTURBANCE IN ATTENTION
     Dosage: 300MG PER DAY
     Route: 048
     Dates: start: 20050101
  3. NITROFURANTOIN [Concomitant]
  4. VITAMIN TAB [Concomitant]

REACTIONS (2)
  - DRUG EXPOSURE DURING PREGNANCY [None]
  - LIVE BIRTH [None]
